FAERS Safety Report 9124064 (Version 5)
Quarter: 2013Q3

REPORT INFORMATION
  Report Type: Spontaneous
  Country: US (occurrence: US)
  Receive Date: 20130227
  Receipt Date: 20130708
  Transmission Date: 20140515
  Serious: Yes (Other)
  Sender: FDA-Public Use
  Company Number: US-PFIZER INC-2012313397

PATIENT
  Age: 65 Year
  Sex: Female
  Weight: 68.03 kg

DRUGS (9)
  1. EFFEXOR XR [Suspect]
     Indication: FIBROMYALGIA
     Dosage: 225 MG (ONE 150MG CAPSULE AND ONE 75MG CAPSULE), 1X/DAY
     Route: 048
     Dates: start: 1994, end: 2013
  2. EFFEXOR XR [Suspect]
     Indication: DEPRESSION
  3. LIPITOR [Concomitant]
     Indication: BLOOD CHOLESTEROL INCREASED
     Dosage: 40 MG, 1X/DAY
     Route: 048
  4. TRICOR [Concomitant]
     Indication: BLOOD CHOLESTEROL INCREASED
     Dosage: 145 MG, 1X/DAY
  5. SYNTHROID [Concomitant]
     Indication: HYPERTHYROIDISM
     Dosage: 137 UG, 1X/DAY
  6. DEXILANT [Concomitant]
     Indication: GASTROOESOPHAGEAL REFLUX DISEASE
     Dosage: 60 MG, 1X/DAY
  7. PROPRANOLOL [Concomitant]
     Indication: BLOOD PRESSURE ABNORMAL
     Dosage: 80 MG, 1X/DAY
  8. LYRICA [Concomitant]
     Indication: FIBROMYALGIA
     Dosage: 50 MG, UNK
  9. LYRICA [Concomitant]
     Indication: DEPRESSION

REACTIONS (6)
  - Glaucoma [Unknown]
  - Cataract [Unknown]
  - Visual impairment [Unknown]
  - Intraocular pressure increased [Unknown]
  - Off label use [Unknown]
  - Poor quality drug administered [Unknown]
